FAERS Safety Report 7864611-3 (Version None)
Quarter: 2011Q4

REPORT INFORMATION
  Report Type: 
  Country: None (occurrence: None)
  Receive Date: 20111026
  Receipt Date: 20111011
  Transmission Date: 20120403
  Serious: Yes (Hospitalization)
  Sender: FDA-Public Use
  Company Number: 2011MA015125

PATIENT
  Age: 60 Year
  Sex: Male

DRUGS (9)
  1. ALPRAZOLAM [Concomitant]
  2. BUPROPION HYDROCHLORIDE [Suspect]
     Indication: DEPRESSION
     Dates: start: 20101201
  3. ESCITALOPRAM [Concomitant]
  4. CLOPIDOGREL [Concomitant]
  5. SIMVASTATIN [Concomitant]
  6. MIRTAZAPINE [Concomitant]
  7. CLONAZEPAM [Concomitant]
  8. ASPIRIN [Concomitant]
  9. TEMISARTAN [Concomitant]

REACTIONS (7)
  - SECONDARY ADRENOCORTICAL INSUFFICIENCY [None]
  - INSOMNIA [None]
  - CARCINOEMBRYONIC ANTIGEN INCREASED [None]
  - ANXIETY [None]
  - DEPRESSION [None]
  - INAPPROPRIATE ANTIDIURETIC HORMONE SECRETION [None]
  - WEIGHT INCREASED [None]
